FAERS Safety Report 25095421 (Version 1)
Quarter: 2025Q1

REPORT INFORMATION
  Report Type: Spontaneous
  Country: FR (occurrence: FR)
  Receive Date: 20250319
  Receipt Date: 20250319
  Transmission Date: 20250408
  Serious: Yes (Other)
  Sender: PFIZER
  Company Number: FR-PFIZER INC-202500058887

PATIENT

DRUGS (1)
  1. NGENLA [Suspect]
     Active Substance: SOMATROGON-GHLA

REACTIONS (1)
  - Lipodystrophy acquired [Unknown]
